FAERS Safety Report 8599047-3 (Version None)
Quarter: 2012Q3

REPORT INFORMATION
  Report Type: 
  Country: None (occurrence: None)
  Receive Date: 20120806
  Receipt Date: 20120806
  Transmission Date: 20120928
  Serious: Yes (Other)
  Sender: FDA-Public Use
  Company Number: None

PATIENT
  Age: 23 Year
  Sex: Female
  Weight: 60.3284 kg

DRUGS (1)
  1. NUCYNTA [Suspect]
     Indication: PAIN
     Dosage: 50MG AS NEEDED PO
     Route: 048
     Dates: start: 20120416, end: 20120512

REACTIONS (3)
  - PARTIAL SEIZURES [None]
  - NAUSEA [None]
  - DIZZINESS [None]
